FAERS Safety Report 18799474 (Version 4)
Quarter: 2021Q1

REPORT INFORMATION
  Report Type: Spontaneous
  Country: AU (occurrence: AU)
  Receive Date: 20210128
  Receipt Date: 20210323
  Transmission Date: 20210419
  Serious: Yes (Hospitalization, Other)
  Sender: FDA-Public Use
  Company Number: AU-MYLANLABS-2021M1004962

PATIENT
  Age: 28 Year
  Sex: Male

DRUGS (4)
  1. CLOZARIL [Suspect]
     Active Substance: CLOZAPINE
     Indication: SCHIZOPHRENIA
     Dosage: 125 MILLIGRAM
     Route: 048
     Dates: start: 20160307
  2. CLOZARIL [Suspect]
     Active Substance: CLOZAPINE
     Dosage: 150 MILLIGRAM
  3. CLOZARIL [Suspect]
     Active Substance: CLOZAPINE
     Dosage: REDUCTION IN CLOZARIL
     Route: 048
     Dates: start: 20210125
  4. CLOZARIL [Suspect]
     Active Substance: CLOZAPINE
     Dosage: 275 MILLIGRAM (CHANGE IN DOSE FROM 150MG TO 275MG PER DAY)

REACTIONS (3)
  - Hospitalisation [Recovered/Resolved]
  - Malaise [Unknown]
  - Psychotic symptom [Unknown]

NARRATIVE: CASE EVENT DATE: 202102
